FAERS Safety Report 7573639-2 (Version None)
Quarter: 2011Q2

REPORT INFORMATION
  Report Type: 
  Country: None (occurrence: None)
  Receive Date: 20110621
  Receipt Date: 20110602
  Transmission Date: 20111010
  Serious: Yes (Life-Threatening, Hospitalization)
  Sender: FDA-Public Use
  Company Number: 20110442

PATIENT
  Age: 13 Year
  Sex: Male

DRUGS (6)
  1. UNSPECIFIED ACTEYEL CHOLINESTERASE INHIBITOR [Suspect]
  2. ONDANSETRON [Suspect]
     Indication: VOMITING
  3. DESFLURANE [Suspect]
     Indication: VOMITING
     Dosage: NASAL
     Route: 045
  4. SEVOFLURANE [Suspect]
     Indication: VOMITING
     Dosage: NASAL
     Route: 045
  5. UNSPECIFIED CHOLINERGIC RECEPTOR AGONIST [Suspect]
  6. VECURONIUM BROMIDE [Suspect]

REACTIONS (3)
  - DRUG INTERACTION [None]
  - VENTRICULAR TACHYCARDIA [None]
  - EXTRASYSTOLES [None]
